FAERS Safety Report 9199584 (Version 1)
Quarter: 2013Q1

REPORT INFORMATION
  Report Type: Spontaneous
  Country: US (occurrence: US)
  Receive Date: 20130329
  Receipt Date: 20130329
  Transmission Date: 20140127
  Serious: No
  Sender: FDA-Public Use
  Company Number: US-GLAXOSMITHKLINE-A1008078A

PATIENT
  Age: 45 Year
  Sex: Female

DRUGS (2)
  1. BENLYSTA [Suspect]
     Route: 042
     Dates: start: 20120330
  2. PREDNISONE [Concomitant]
     Dosage: 3MG PER DAY

REACTIONS (3)
  - Weight increased [Unknown]
  - Menstruation irregular [Unknown]
  - Menorrhagia [Unknown]
